FAERS Safety Report 10167805 (Version 1)
Quarter: 2014Q2

REPORT INFORMATION
  Report Type: Spontaneous
  Country: US (occurrence: US)
  Receive Date: 20140512
  Receipt Date: 20140512
  Transmission Date: 20141212
  Serious: No
  Sender: FDA-Public Use
  Company Number: US-BAYER-2014-068805

PATIENT
  Age: 29 Year
  Sex: Female

DRUGS (1)
  1. MIRENA [Suspect]
     Indication: CONTRACEPTION
     Dosage: 20 ?G/D, CONT
     Route: 015
     Dates: start: 201106

REACTIONS (4)
  - Amenorrhoea [Recovered/Resolved]
  - Hypomenorrhoea [Recovered/Resolved]
  - Oligomenorrhoea [None]
  - Menstruation irregular [None]
